FAERS Safety Report 12393719 (Version 1)
Quarter: 2016Q2

REPORT INFORMATION
  Report Type: Report from Study
  Country: FR (occurrence: FR)
  Receive Date: 20160523
  Receipt Date: 20160523
  Transmission Date: 20160815
  Serious: Yes (Hospitalization)
  Sender: FDA-Public Use
  Company Number: FR-BAXTER-2016BAX026163

PATIENT
  Age: 51 Year
  Sex: Female
  Weight: 54 kg

DRUGS (8)
  1. ENDOXAN 50 MG, COMPRIM? ENROB? [Suspect]
     Active Substance: CYCLOPHOSPHAMIDE
     Indication: OSTEOSARCOMA
     Dosage: REGIMEN#1
     Route: 048
     Dates: start: 20151005
  2. METHOTREXATE SODIUM. [Suspect]
     Active Substance: METHOTREXATE SODIUM
     Route: 048
     Dates: start: 20151025
  3. METHOTREXATE SODIUM. [Suspect]
     Active Substance: METHOTREXATE SODIUM
     Indication: OSTEOSARCOMA
     Route: 048
     Dates: start: 20151005
  4. DEROXAT [Concomitant]
     Active Substance: PAROXETINE HYDROCHLORIDE
     Indication: DEPRESSION
     Route: 048
     Dates: start: 20151023
  5. SIROLIMUS. [Suspect]
     Active Substance: SIROLIMUS
     Route: 065
     Dates: start: 20151029
  6. ZOLEDRONIC ACID [Suspect]
     Active Substance: ZOLEDRONIC ACID
     Indication: OSTEOSARCOMA
     Dosage: REGIMEN#1
     Route: 065
     Dates: start: 20151005
  7. SIROLIMUS. [Suspect]
     Active Substance: SIROLIMUS
     Indication: OSTEOSARCOMA
     Route: 065
     Dates: start: 20151005
  8. ENDOXAN 50 MG, COMPRIM? ENROB? [Suspect]
     Active Substance: CYCLOPHOSPHAMIDE
     Dosage: REGIMEN#1
     Route: 048
     Dates: start: 20151029

REACTIONS (1)
  - Musculoskeletal chest pain [Recovered/Resolved]

NARRATIVE: CASE EVENT DATE: 20151029
